FAERS Safety Report 5630645-2 (Version None)
Quarter: 2008Q1

REPORT INFORMATION
  Report Type: 
  Country: None (occurrence: None)
  Receive Date: 20080214
  Receipt Date: 20080205
  Transmission Date: 20080703
  Serious: Yes (Other)
  Sender: FDA-Public Use
  Company Number: 2008003197

PATIENT
  Sex: Male

DRUGS (2)
  1. NEOSPORIN PLUS PAIN RELIEF MAXIUM STRENGTH (POLYMYXIN B SULFATE, BACIT [Suspect]
     Dosage: ^NICKEL SIZE^, ONCE, TOPICAL
     Route: 061
     Dates: start: 20080204, end: 20080204
  2. ASPIRIN [Concomitant]

REACTIONS (2)
  - SKIN EXFOLIATION [None]
  - THERMAL BURN [None]
